FAERS Safety Report 12477681 (Version 1)
Quarter: 2016Q2

REPORT INFORMATION
  Report Type: Spontaneous
  Country: GB (occurrence: GB)
  Receive Date: 20160617
  Receipt Date: 20160617
  Transmission Date: 20160815
  Serious: Yes (Life-Threatening, Hospitalization)
  Sender: FDA-Public Use
  Company Number: GB-SUNOVION-2016SUN001516

PATIENT

DRUGS (7)
  1. ZONISAMIDE. [Concomitant]
     Active Substance: ZONISAMIDE
     Indication: EPILEPSY
  2. LATUDA [Suspect]
     Active Substance: LURASIDONE HYDROCHLORIDE
     Indication: PSYCHOTIC BEHAVIOUR
     Dosage: 18 MG, QD
     Route: 048
     Dates: start: 201507, end: 20151221
  3. LATUDA [Suspect]
     Active Substance: LURASIDONE HYDROCHLORIDE
     Dosage: 37 MG, QD
     Route: 048
     Dates: start: 20151222, end: 20160118
  4. LATUDA [Suspect]
     Active Substance: LURASIDONE HYDROCHLORIDE
     Dosage: 74 MG, QD
     Route: 048
     Dates: start: 20160326, end: 20160505
  5. LATUDA [Suspect]
     Active Substance: LURASIDONE HYDROCHLORIDE
     Dosage: 74 MG, QD
     Route: 048
     Dates: start: 20160119, end: 20160204
  6. LATUDA [Suspect]
     Active Substance: LURASIDONE HYDROCHLORIDE
     Dosage: 92.5 MG, QD
     Route: 048
     Dates: start: 20160205, end: 20160325
  7. RITALIN [Concomitant]
     Active Substance: METHYLPHENIDATE HYDROCHLORIDE
     Dates: start: 20160309, end: 20160327

REACTIONS (10)
  - Abnormal behaviour [Recovered/Resolved with Sequelae]
  - Generalised tonic-clonic seizure [Recovered/Resolved]
  - Suicidal behaviour [Recovered/Resolved with Sequelae]
  - Self injurious behaviour [Recovered/Resolved with Sequelae]
  - Aggression [Recovered/Resolved with Sequelae]
  - Impulsive behaviour [Recovered/Resolved with Sequelae]
  - Sexually inappropriate behaviour [Recovered/Resolved]
  - Anger [Recovered/Resolved with Sequelae]
  - Petit mal epilepsy [Recovered/Resolved]
  - Condition aggravated [Recovered/Resolved]

NARRATIVE: CASE EVENT DATE: 20160109
